FAERS Safety Report 6195032-X (Version None)
Quarter: 2009Q2

REPORT INFORMATION
  Report Type: 
  Country: None (occurrence: None)
  Receive Date: 20090519
  Receipt Date: 20090511
  Transmission Date: 20091009
  Serious: Yes (Hospitalization)
  Sender: FDA-Public Use
  Company Number: B0574461A

PATIENT
  Sex: Male

DRUGS (10)
  1. KREDEX [Suspect]
     Route: 048
     Dates: start: 20090101
  2. CRESTOR [Suspect]
     Dosage: 5MG PER DAY
     Route: 048
     Dates: start: 20090101
  3. PLAVIX [Suspect]
     Indication: CORONARY ARTERIAL STENT INSERTION
     Dosage: 75MG PER DAY
     Route: 048
     Dates: start: 20090101, end: 20090324
  4. PREVISCAN [Suspect]
     Indication: ATRIAL FLUTTER
     Route: 048
     Dates: start: 20090101, end: 20090305
  5. DIAMICRON [Concomitant]
  6. LASIX [Concomitant]
  7. CREON [Concomitant]
  8. ASPEGIC 1000 [Concomitant]
  9. DAFALGAN [Concomitant]
  10. TRAMADOL HCL [Concomitant]

REACTIONS (4)
  - EPIDERMAL NECROSIS [None]
  - FACE OEDEMA [None]
  - PRURITUS [None]
  - RASH MACULO-PAPULAR [None]
